FAERS Safety Report 9999459 (Version 1)
Quarter: 2014Q1

REPORT INFORMATION
  Report Type: Spontaneous
  Country: US (occurrence: None)
  Receive Date: 20140311
  Receipt Date: 20140311
  Transmission Date: 20141002
  Serious: Yes (Other)
  Sender: FDA-Public Use
  Company Number: None

PATIENT
  Age: 59 Year
  Sex: Male
  Weight: 73.6 kg

DRUGS (1)
  1. CHLORHEXIDINE GLUCONATE [Suspect]
     Route: 061
     Dates: start: 20131220, end: 20131220

REACTIONS (1)
  - Rash [None]
